FAERS Safety Report 24730611 (Version 1)
Quarter: 2024Q4

REPORT INFORMATION
  Report Type: Spontaneous
  Country: US (occurrence: US)
  Receive Date: 20241213
  Receipt Date: 20241213
  Transmission Date: 20250115
  Serious: No
  Sender: BIOVITRUM
  Company Number: US-BIOVITRUM-2024-US-015869

PATIENT
  Age: 89 Year
  Sex: Male

DRUGS (1)
  1. VONJO [Suspect]
     Active Substance: PACRITINIB
     Indication: Myelofibrosis
     Dosage: TWICE DAILY (BID)
     Route: 048
     Dates: start: 20231008

REACTIONS (6)
  - Blood creatine increased [Unknown]
  - Renal disorder [Unknown]
  - Skin ulcer [Unknown]
  - Laboratory test abnormal [Unknown]
  - Platelet count decreased [Unknown]
  - White blood cell count increased [Unknown]
